FAERS Safety Report 19395941 (Version 1)
Quarter: 2021Q2

REPORT INFORMATION
  Report Type: Report from Study
  Country: IT (occurrence: IT)
  Receive Date: 20210609
  Receipt Date: 20210609
  Transmission Date: 20210717
  Serious: Yes (Other)
  Sender: FDA-Public Use
  Company Number: IT-BAYER-2021-152462

PATIENT
  Age: 65 Year
  Sex: Female

DRUGS (2)
  1. SORAFENIB [Suspect]
     Active Substance: SORAFENIB
     Indication: HEPATOCELLULAR CARCINOMA
     Dosage: 400 MG DAILY
     Route: 048
  2. SORAFENIB [Suspect]
     Active Substance: SORAFENIB
     Indication: HEPATOCELLULAR CARCINOMA
     Dosage: 200 MG EVERY OTHER DAY
     Route: 048
     Dates: start: 201710

REACTIONS (7)
  - Abdominal distension [None]
  - Fatigue [None]
  - Pruritus [None]
  - Adverse drug reaction [None]
  - Weight increased [None]
  - Diarrhoea [None]
  - Alopecia [None]
